FAERS Safety Report 8517879-4 (Version None)
Quarter: 2012Q3

REPORT INFORMATION
  Report Type: 
  Country: None (occurrence: None)
  Receive Date: 20120712
  Receipt Date: 20120712
  Transmission Date: 20120928
  Serious: No
  Sender: FDA-Public Use
  Company Number: None

PATIENT
  Age: 41 Year
  Sex: Female
  Weight: 122.4712 kg

DRUGS (1)
  1. AUGMENTIN '875' [Suspect]
     Indication: PHARYNGITIS STREPTOCOCCAL
     Dosage: 1 TABLET EVERY 12 HOURS
     Dates: start: 20120618, end: 20120625

REACTIONS (3)
  - CONFUSIONAL STATE [None]
  - FATIGUE [None]
  - PERFORMANCE STATUS DECREASED [None]
